FAERS Safety Report 4333728-2 (Version None)
Quarter: 2004Q2

REPORT INFORMATION
  Report Type: 
  Country: None (occurrence: None)
  Receive Date: 20040406
  Receipt Date: 20040406
  Transmission Date: 20050107
  Serious: Yes (Death, Hospitalization)
  Sender: FDA-Public Use
  Company Number: None

PATIENT
  Age: 22 Year
  Sex: Female
  Weight: 55 kg

DRUGS (13)
  1. GEMCITABINE HYDROCHLORIDE-IV (GEMCITABINE) [Suspect]
     Indication: ADENOCARCINOMA
     Dosage: 1570 MG
     Dates: start: 20030227, end: 20030306
  2. GEMCITABINE HYDROCHLORIDE-IV (GEMCITABINE) [Suspect]
     Indication: METASTATIC NEOPLASM
     Dosage: 1570 MG
     Dates: start: 20030227, end: 20030306
  3. CARBOPLATIN [Suspect]
     Indication: ADENOCARCINOMA
     Dosage: 565 MG
     Dates: start: 20030227, end: 20030227
  4. CARBOPLATIN [Suspect]
     Indication: METASTATIC NEOPLASM
     Dosage: 565 MG
     Dates: start: 20030227, end: 20030227
  5. ETOPOSIDE [Suspect]
     Indication: ADENOCARCINOMA
     Dosage: 78.5 MG
     Dates: start: 20030306, end: 20030308
  6. ETOPOSIDE [Suspect]
     Indication: METASTATIC NEOPLASM
     Dosage: 78.5 MG
     Dates: start: 20030306, end: 20030308
  7. MS CONTIN [Concomitant]
  8. PERCOCET [Concomitant]
  9. SENOKOT [Concomitant]
  10. COMBIVENT [Concomitant]
  11. AMBIEN [Concomitant]
  12. PHENERGAN [Concomitant]
  13. OXYGEN [Concomitant]

REACTIONS (16)
  - CARDIO-RESPIRATORY ARREST [None]
  - CLOSTRIDIUM COLITIS [None]
  - COLITIS [None]
  - DYSURIA [None]
  - ELECTROMECHANICAL DISSOCIATION [None]
  - HAEMOPTYSIS [None]
  - NAUSEA [None]
  - NEUTROPENIA [None]
  - PAIN [None]
  - PLATELET COUNT DECREASED [None]
  - PYREXIA [None]
  - RENAL CANCER METASTATIC [None]
  - RENAL MASS [None]
  - TACHYCARDIA [None]
  - URINE ANALYSIS ABNORMAL [None]
  - VOMITING [None]
